FAERS Safety Report 8094441-1 (Version None)
Quarter: 2012Q1

REPORT INFORMATION
  Report Type: 
  Country: None (occurrence: None)
  Receive Date: 20120130
  Receipt Date: 20120118
  Transmission Date: 20120608
  Serious: Yes (Other)
  Sender: FDA-Public Use
  Company Number: FR-JNJFOC-20111206111

PATIENT
  Age: 61 Year
  Sex: Male

DRUGS (11)
  1. METHOTREXATE SODIUM [Concomitant]
     Dates: start: 20041001
  2. REMICADE [Suspect]
     Indication: RHEUMATOID ARTHRITIS
     Route: 042
     Dates: start: 20050526, end: 20061211
  3. ENBREL [Suspect]
     Indication: RHEUMATOID ARTHRITIS
     Dates: start: 20040301, end: 20041001
  4. ARAVA [Suspect]
     Dates: start: 20050401
  5. HUMIRA [Suspect]
     Indication: RHEUMATOID ARTHRITIS
     Route: 058
     Dates: start: 20041101, end: 20041201
  6. SOLU-MEDROL [Suspect]
     Indication: RETINAL VASCULITIS
     Dosage: DOSE REPORTED AS 2 BOLUS
     Dates: start: 20041201
  7. ARAVA [Suspect]
     Indication: PRODUCT USED FOR UNKNOWN INDICATION
     Dates: end: 20070101
  8. PREDNISONE TAB [Concomitant]
  9. ACTEMRA [Suspect]
     Indication: RHEUMATOID ARTHRITIS
  10. MABTHERA [Suspect]
     Indication: RHEUMATOID ARTHRITIS
     Dates: start: 20070201, end: 20110201
  11. CYCLOPHOSPHAMIDE [Suspect]
     Indication: RETINAL VASCULITIS
     Dates: start: 20041201, end: 20050527

REACTIONS (2)
  - RETINAL VASCULITIS [None]
  - BLADDER CANCER [None]
